FAERS Safety Report 14413223 (Version 1)
Quarter: 2018Q1

REPORT INFORMATION
  Report Type: Spontaneous
  Country: US (occurrence: US)
  Receive Date: 20180119
  Receipt Date: 20180119
  Transmission Date: 20180509
  Serious: Yes (Hospitalization)
  Sender: FDA-Public Use
  Company Number: None

PATIENT
  Age: 75 Year
  Sex: Male
  Weight: 98.7 kg

DRUGS (12)
  1. WARFARIN [Suspect]
     Active Substance: WARFARIN
     Indication: CORONARY ARTERY DISEASE
     Dosage: DATE OF USE CHRONIC?QPM
     Route: 048
  2. COLACE [Concomitant]
     Active Substance: DOCUSATE SODIUM
  3. ISORDIL [Concomitant]
     Active Substance: ISOSORBIDE DINITRATE
  4. VASOTEC [Concomitant]
     Active Substance: ENALAPRIL MALEATE
  5. PROSCAR [Concomitant]
     Active Substance: FINASTERIDE
  6. NEURONTIN [Concomitant]
     Active Substance: GABAPENTIN
  7. PLAVIX [Suspect]
     Active Substance: CLOPIDOGREL BISULFATE
     Indication: CORONARY ARTERY DISEASE
     Dosage: DATE OF USE CHRONIC
     Route: 048
  8. LIPITOR [Concomitant]
     Active Substance: ATORVASTATIN CALCIUM
  9. ASPIRIN EC 81MG PO BID [Suspect]
     Active Substance: ASPIRIN
     Route: 048
  10. LASIX [Concomitant]
     Active Substance: FUROSEMIDE
  11. GLUCOTROL [Concomitant]
     Active Substance: GLIPIZIDE
  12. VITAMIN D3 [Concomitant]
     Active Substance: CHOLECALCIFEROL

REACTIONS (2)
  - Iron deficiency anaemia [None]
  - International normalised ratio increased [None]

NARRATIVE: CASE EVENT DATE: 20170824
